FAERS Safety Report 5508657-9 (Version None)
Quarter: 2007Q4

REPORT INFORMATION
  Report Type: 
  Country: None (occurrence: None)
  Receive Date: 20071105
  Receipt Date: 20071031
  Transmission Date: 20080405
  Serious: Yes (Life-Threatening, Hospitalization)
  Sender: FDA-Public Use
  Company Number: 2007SP020439

PATIENT
  Age: 53 Year
  Sex: Female

DRUGS (1)
  1. DIPROSTENE (BETAMETHASONE SODIUM PHOSPHATE/DIPROPIONATE) (BETAMETHASON [Suspect]
     Indication: TENDONITIS
     Dosage: 7 MG; ONCE; IA
     Route: 014
     Dates: start: 20070920, end: 20070920

REACTIONS (4)
  - ANAPHYLACTIC SHOCK [None]
  - BLOOD PRESSURE SYSTOLIC INCREASED [None]
  - OEDEMA PERIPHERAL [None]
  - RASH MACULO-PAPULAR [None]
